FAERS Safety Report 5025812-5 (Version None)
Quarter: 2006Q2

REPORT INFORMATION
  Report Type: 
  Country: None (occurrence: None)
  Receive Date: 20060427
  Receipt Date: 20051007
  Transmission Date: 20061013
  Serious: Yes (Other)
  Sender: FDA-Public Use
  Company Number: 2005057895

PATIENT
  Sex: Female
  Weight: 53.5244 kg

DRUGS (20)
  1. ZITHROMAX [Suspect]
     Indication: BACTERIAL INFECTION
     Dosage: (EVERY DAY), ORAL
     Route: 048
     Dates: start: 20050323, end: 20050101
  2. ZITHROMAX [Suspect]
     Indication: EAR PAIN
     Dosage: (EVERY DAY), ORAL
     Route: 048
     Dates: start: 20050323, end: 20050101
  3. AMITRIPTYLINE HCL [Concomitant]
  4. FUROSEMIDE [Concomitant]
  5. BENAZEPRIL (BENAZEPRIL) [Concomitant]
  6. NORVASC [Concomitant]
  7. NITROFURANTOIN [Concomitant]
  8. METOPROLOL SUCCINATE [Concomitant]
  9. OXYBUTYNIN CHLORIDE [Concomitant]
  10. CALCIUM (CALCIUM) [Concomitant]
  11. VITAMIN A (NATURAL) CAP [Concomitant]
  12. IRON (IRON) [Concomitant]
  13. POTASSIUM CHLORIDE [Concomitant]
  14. GLUCOSAMINE (GLUCOSAMINE) [Concomitant]
  15. CRANBERRY (VACCINIUM MACROCARPON) [Concomitant]
  16. VITAMIN E [Concomitant]
  17. PREVACID [Concomitant]
  18. MACUVISION (TAURINE, THIOCTIC ACID, TOCOPHEROL) [Concomitant]
  19. VITAMIN C (VITAMIN C) [Concomitant]
  20. MECLIZINE [Concomitant]

REACTIONS (3)
  - DEAFNESS [None]
  - TINNITUS [None]
  - VERTIGO [None]
